FAERS Safety Report 12717512 (Version 1)
Quarter: 2016Q3

REPORT INFORMATION
  Report Type: Spontaneous
  Country: US (occurrence: US)
  Receive Date: 20160906
  Receipt Date: 20160906
  Transmission Date: 20161109
  Serious: No
  Sender: FDA-Public Use
  Company Number: US-AMNEAL PHARMACEUTICALS-2016AMN00174

PATIENT
  Sex: Female
  Weight: 72.56 kg

DRUGS (2)
  1. ALEVE [Concomitant]
     Active Substance: NAPROXEN SODIUM
     Dosage: UNK
     Dates: end: 201512
  2. GABAPENTIN. [Suspect]
     Active Substance: GABAPENTIN
     Indication: SCIATIC NERVE INJURY
     Dosage: UNK
     Route: 048
     Dates: end: 201512

REACTIONS (2)
  - Product substitution issue [Unknown]
  - Drug ineffective [Not Recovered/Not Resolved]
